FAERS Safety Report 7286740-8 (Version None)
Quarter: 2011Q1

REPORT INFORMATION
  Report Type: 
  Country: None (occurrence: None)
  Receive Date: 20110210
  Receipt Date: 20110127
  Transmission Date: 20110831
  Serious: Yes (Other)
  Sender: FDA-Public Use
  Company Number: CA-GENENTECH-313433

PATIENT
  Sex: Female

DRUGS (8)
  1. LAMICTAL [Concomitant]
     Indication: PRODUCT USED FOR UNKNOWN INDICATION
  2. XOLAIR [Suspect]
     Dosage: 150 MG, UNKNOWN
     Route: 042
     Dates: start: 20101101, end: 20110101
  3. IMMUNE GLOBULIN INTRAVENOUS (HUMAN) [Concomitant]
     Indication: PRODUCT USED FOR UNKNOWN INDICATION
  4. ALVESCO [Concomitant]
     Indication: PRODUCT USED FOR UNKNOWN INDICATION
  5. ADVAIR [Concomitant]
     Indication: PRODUCT USED FOR UNKNOWN INDICATION
  6. SYMBICORT [Concomitant]
     Indication: PRODUCT USED FOR UNKNOWN INDICATION
  7. XOLAIR [Suspect]
     Indication: ASTHMA
     Dosage: 150 MG, 1/MONTH
     Route: 058
     Dates: start: 20101027, end: 20110118
  8. AZITHROMYCIN [Concomitant]
     Indication: PRODUCT USED FOR UNKNOWN INDICATION
     Dosage: UNK
     Dates: start: 20091001

REACTIONS (15)
  - ALOPECIA [None]
  - FALL [None]
  - TACHYCARDIA [None]
  - PRURITUS [None]
  - ORTHOSTATIC HYPOTENSION [None]
  - DIZZINESS [None]
  - ATAXIA [None]
  - INCORRECT ROUTE OF DRUG ADMINISTRATION [None]
  - VISUAL IMPAIRMENT [None]
  - FATIGUE [None]
  - LOWER RESPIRATORY TRACT INFECTION [None]
  - HEART RATE IRREGULAR [None]
  - PALPITATIONS [None]
  - NYSTAGMUS [None]
  - CONTUSION [None]
